FAERS Safety Report 25258458 (Version 3)
Quarter: 2025Q2

REPORT INFORMATION
  Report Type: Spontaneous
  Country: FI (occurrence: FI)
  Receive Date: 20250501
  Receipt Date: 20250522
  Transmission Date: 20250716
  Serious: Yes (Disabling, Other)
  Sender: ABBVIE
  Company Number: FI-ABBVIE-6255265

PATIENT
  Age: 50 Year
  Sex: Female

DRUGS (1)
  1. OZURDEX [Suspect]
     Active Substance: DEXAMETHASONE
     Indication: Product used for unknown indication
     Route: 050

REACTIONS (6)
  - Injury corneal [Unknown]
  - Corneal opacity [Unknown]
  - Device dislocation [Unknown]
  - Corneal endothelial disorder [Unknown]
  - Corneal oedema [Unknown]
  - Visual impairment [Unknown]

NARRATIVE: CASE EVENT DATE: 20250101
